FAERS Safety Report 9125857 (Version 1)
Quarter: 2013Q1

REPORT INFORMATION
  Report Type: Spontaneous
  Country: US (occurrence: US)
  Receive Date: 20130121
  Receipt Date: 20130121
  Transmission Date: 20140127
  Serious: Yes (Death)
  Sender: FDA-Public Use
  Company Number: US-JNJFOC-20130106005

PATIENT
  Age: 95 Year
  Sex: Male

DRUGS (7)
  1. METHYLPHENIDATE [Suspect]
     Indication: SUICIDE ATTEMPT
     Route: 048
  2. ACETAMINOPHEN [Suspect]
     Route: 048
  3. ACETAMINOPHEN [Suspect]
     Indication: SUICIDE ATTEMPT
     Route: 048
  4. BUSPIRONE [Suspect]
     Indication: SUICIDE ATTEMPT
     Route: 048
  5. FLUOXETINE [Suspect]
     Indication: SUICIDE ATTEMPT
     Route: 048
  6. NEFAZODONE [Suspect]
     Indication: SUICIDE ATTEMPT
     Route: 048
  7. HYOSCYAMINE [Suspect]
     Indication: SUICIDE ATTEMPT
     Route: 048

REACTIONS (1)
  - Toxicity to various agents [Fatal]
